FAERS Safety Report 15856897 (Version 1)
Quarter: 2019Q1

REPORT INFORMATION
  Report Type: Spontaneous
  Country: IT (occurrence: IT)
  Receive Date: 20190123
  Receipt Date: 20190123
  Transmission Date: 20190417
  Serious: Yes (Other)
  Sender: FDA-Public Use
  Company Number: IT-SUN PHARMACEUTICAL INDUSTRIES LTD-2019RR-196894

PATIENT
  Age: 37 Year
  Sex: Male

DRUGS (12)
  1. FLUOROURACIL. [Suspect]
     Active Substance: FLUOROURACIL
     Indication: PALLIATIVE CARE
     Dosage: UNK
     Route: 065
     Dates: start: 201806
  2. AFLIBERCEPT [Suspect]
     Active Substance: AFLIBERCEPT
     Indication: PALLIATIVE CARE
     Dosage: UNK
     Route: 065
     Dates: start: 201801
  3. FOLINIC ACID [Suspect]
     Active Substance: LEUCOVORIN
     Indication: COLORECTAL CANCER
     Dosage: UNK
     Route: 065
     Dates: start: 20160629, end: 20170420
  4. FOLINIC ACID [Suspect]
     Active Substance: LEUCOVORIN
     Indication: DISEASE RECURRENCE
     Dosage: UNK
     Route: 065
     Dates: start: 201706, end: 20170913
  5. IRINOTECAN [Suspect]
     Active Substance: IRINOTECAN
     Indication: DISEASE RECURRENCE
     Dosage: UNK
     Route: 065
     Dates: start: 201706, end: 20170913
  6. FLUOROURACIL. [Suspect]
     Active Substance: FLUOROURACIL
     Indication: COLORECTAL CANCER
     Dosage: UNK
     Route: 065
     Dates: start: 20160629, end: 20170420
  7. FOLINIC ACID [Suspect]
     Active Substance: LEUCOVORIN
     Indication: PALLIATIVE CARE
     Dosage: UNK
     Route: 065
     Dates: start: 201801
  8. OXALIPLATIN. [Suspect]
     Active Substance: OXALIPLATIN
     Indication: COLORECTAL CANCER
     Dosage: UNK
     Route: 065
     Dates: start: 20160629, end: 20170420
  9. AFLIBERCEPT [Suspect]
     Active Substance: AFLIBERCEPT
     Indication: DISEASE RECURRENCE
     Dosage: UNK
     Route: 065
     Dates: start: 201706, end: 20170913
  10. IRINOTECAN [Suspect]
     Active Substance: IRINOTECAN
     Indication: PALLIATIVE CARE
     Dosage: UNK
     Dates: start: 201801
  11. BEVACIZUMAB. [Suspect]
     Active Substance: BEVACIZUMAB
     Indication: COLORECTAL CANCER
     Dosage: UNK
     Route: 065
     Dates: start: 20160629, end: 20170420
  12. FLUOROURACIL. [Suspect]
     Active Substance: FLUOROURACIL
     Indication: DISEASE RECURRENCE
     Dosage: UNK
     Route: 065
     Dates: start: 201706, end: 20170913

REACTIONS (3)
  - Diarrhoea [Unknown]
  - Hepatic cancer [Unknown]
  - Drug effect incomplete [Unknown]

NARRATIVE: CASE EVENT DATE: 201801
